FAERS Safety Report 4358022-5 (Version None)
Quarter: 2004Q2

REPORT INFORMATION
  Report Type: 
  Country: None (occurrence: None)
  Receive Date: 20040513
  Receipt Date: 20040426
  Transmission Date: 20050107
  Serious: Yes (Hospitalization)
  Sender: FDA-Public Use
  Company Number: DSA_24307_2004

PATIENT
  Age: 49 Year
  Sex: Male

DRUGS (3)
  1. DICLOFENAC [Suspect]
  2. IBUPROFEN [Suspect]
  3. KETOROLAC TROMETHAMINE [Suspect]

REACTIONS (7)
  - BONE SCAN ABNORMAL [None]
  - ENDOCARDITIS STAPHYLOCOCCAL [None]
  - GENERAL PHYSICAL HEALTH DETERIORATION [None]
  - MEDICATION ERROR [None]
  - OSTEOMYELITIS [None]
  - RENAL FAILURE ACUTE [None]
  - SPINAL DISORDER [None]
